FAERS Safety Report 8067943-1 (Version None)
Quarter: 2012Q1

REPORT INFORMATION
  Report Type: 
  Country: None (occurrence: None)
  Receive Date: 20120124
  Receipt Date: 20110914
  Transmission Date: 20120608
  Serious: No
  Sender: FDA-Public Use
  Company Number: US-AMGEN-USASP2011047106

PATIENT
  Age: 76 Year
  Sex: Female

DRUGS (10)
  1. FLUTICASONE PROPIONATE [Concomitant]
  2. VITAMIN D [Concomitant]
  3. IBUPROFEN (ADVIL) [Concomitant]
  4. PANTOPRAZOLE [Concomitant]
  5. PROLIA [Suspect]
     Indication: OSTEOPOROSIS POSTMENOPAUSAL
     Dosage: 60 MG, Q6MO
     Route: 058
     Dates: start: 20110218
  6. PRAVASTATIN [Concomitant]
  7. CALCITRIOL [Concomitant]
  8. XOPENEX [Concomitant]
  9. OMEPRAZOLE [Concomitant]
  10. BENTYL [Concomitant]

REACTIONS (3)
  - BURNING SENSATION [None]
  - DYSPEPSIA [None]
  - ABDOMINAL DISCOMFORT [None]
